FAERS Safety Report 5836126-5 (Version None)
Quarter: 2008Q3

REPORT INFORMATION
  Report Type: 
  Country: None (occurrence: None)
  Receive Date: 20080806
  Receipt Date: 20080729
  Transmission Date: 20090109
  Serious: Yes (Other)
  Sender: FDA-Public Use
  Company Number: US-GENENTECH-264591

PATIENT
  Sex: Male
  Weight: 54.422 kg

DRUGS (4)
  1. AVASTIN [Suspect]
     Indication: COLON CANCER METASTATIC
     Dosage: UNK
     Dates: start: 20080609, end: 20080609
  2. AVASTIN [Suspect]
     Dosage: UNK
     Dates: start: 20040401, end: 20050401
  3. AVASTIN [Suspect]
     Dosage: UNK
     Dates: start: 20060101, end: 20071101
  4. OXYGEN [Concomitant]
     Indication: DRUG USE FOR UNKNOWN INDICATION
     Route: 045

REACTIONS (1)
  - PNEUMOTHORAX [None]
